FAERS Safety Report 11145283 (Version 2)
Quarter: 2015Q3

REPORT INFORMATION
  Report Type: Spontaneous
  Country: FR (occurrence: FR)
  Receive Date: 20150526
  Receipt Date: 20150706
  Transmission Date: 20151125
  Serious: Yes (Other)
  Sender: FDA-Public Use
  Company Number: FR-PFIZER INC-2015170081

PATIENT
  Age: 79 Year
  Sex: Male
  Weight: 85.5 kg

DRUGS (3)
  1. TORISEL [Suspect]
     Active Substance: TEMSIROLIMUS
     Indication: RENAL CANCER METASTATIC
     Dosage: 25 MG, (FREQUENCY NOT REPORTED)
     Dates: start: 20150317, end: 20150421
  2. DUROGESIC [Concomitant]
     Active Substance: FENTANYL
     Route: 003
  3. ECONAZOLE [Concomitant]
     Active Substance: ECONAZOLE
     Indication: FUNGAL INFECTION
     Dosage: 2 DF, DAILY
     Dates: start: 20150415, end: 20150425

REACTIONS (1)
  - Toxic skin eruption [Recovering/Resolving]

NARRATIVE: CASE EVENT DATE: 20150421
